FAERS Safety Report 15968534 (Version 2)
Quarter: 2019Q1

REPORT INFORMATION
  Report Type: Spontaneous
  Country: US (occurrence: US)
  Receive Date: 20190215
  Receipt Date: 20190222
  Transmission Date: 20190418
  Serious: No
  Sender: FDA-Public Use
  Company Number: US-CELGENEUS-USA-20190203484

PATIENT
  Age: 44 Year
  Sex: Male

DRUGS (6)
  1. OTEZLA [Suspect]
     Active Substance: APREMILAST
     Dosage: 60 MILLIGRAM
     Route: 048
     Dates: start: 20180426
  2. CLOBETASOL [Concomitant]
     Active Substance: CLOBETASOL
     Route: 061
     Dates: start: 2019
  3. FLUOCINONIDE. [Concomitant]
     Active Substance: FLUOCINONIDE
     Route: 061
     Dates: start: 2019
  4. CLOBETASOL [Concomitant]
     Active Substance: CLOBETASOL
     Indication: PSORIASIS
     Route: 065
     Dates: start: 20171212
  5. OTEZLA [Suspect]
     Active Substance: APREMILAST
     Indication: PSORIASIS
     Dosage: 60 MILLIGRAM
     Route: 048
     Dates: start: 201801
  6. FLUOCINONIDE. [Concomitant]
     Active Substance: FLUOCINONIDE
     Indication: PSORIASIS
     Route: 065
     Dates: start: 20171212

REACTIONS (2)
  - Product dose omission [Unknown]
  - Psoriasis [Recovered/Resolved]

NARRATIVE: CASE EVENT DATE: 201901
